FAERS Safety Report 5754718-9 (Version None)
Quarter: 2008Q2

REPORT INFORMATION
  Report Type: 
  Country: None (occurrence: None)
  Receive Date: 20080530
  Receipt Date: 20080521
  Transmission Date: 20081010
  Serious: Yes (Hospitalization)
  Sender: FDA-Public Use
  Company Number: JP-PFIZER INC-2008044302

PATIENT
  Age: 25 Year
  Sex: Female

DRUGS (2)
  1. HALCION [Suspect]
     Route: 048
  2. DRUG, UNSPECIFIED [Concomitant]
     Route: 048

REACTIONS (2)
  - COMA [None]
  - PNEUMONIA ASPIRATION [None]
